FAERS Safety Report 21470687 (Version 1)
Quarter: 2022Q4

REPORT INFORMATION
  Report Type: Spontaneous
  Country: NL (occurrence: NL)
  Receive Date: 20221018
  Receipt Date: 20221018
  Transmission Date: 20230113
  Serious: Yes (Other)
  Sender: FDA-Public Use
  Company Number: NL-LRB-00456350

PATIENT
  Age: 44 Year
  Sex: Female
  Weight: 99 kg

DRUGS (4)
  1. PREGABALIN [Suspect]
     Active Substance: PREGABALIN
     Indication: Product used for unknown indication
     Dosage: 1 X PER DAY 1 PIECES ()
     Route: 065
     Dates: start: 20210204
  2. ASTRAZENECA COVID-19 VACCINE [Suspect]
     Active Substance: AZD-1222
     Indication: COVID-19 immunisation
     Dosage: 1 DOSAGE FORM, UNKNOWN
     Route: 065
     Dates: start: 20210224
  3. PARACETAMOL CAPSULE 500MG / Brand name not specifiedPARACETAMOL CAP... [Concomitant]
     Indication: Product used for unknown indication
     Dosage: CAPSULE, 500 MG (MILLIGRAM) ()
     Route: 065
  4. METHOTREXAAT INJVLST  50MG/ML / METOJECT INJVLST 10MG/0,2ML (50MG/M... [Concomitant]
     Indication: Product used for unknown indication
     Dosage: 1 X PER WEEK 25 MG ()
     Route: 065
     Dates: start: 201612

REACTIONS (12)
  - Psoriatic arthropathy [Unknown]
  - Pyrexia [Not Recovered/Not Resolved]
  - Injection site pain [Not Recovered/Not Resolved]
  - Injection site warmth [Not Recovered/Not Resolved]
  - Malaise [Not Recovered/Not Resolved]
  - Myalgia [Not Recovered/Not Resolved]
  - Chills [Not Recovered/Not Resolved]
  - Fatigue [Not Recovered/Not Resolved]
  - Injection site inflammation [Not Recovered/Not Resolved]
  - Arthralgia [Not Recovered/Not Resolved]
  - Headache [Recovering/Resolving]
  - Arthralgia [Not Recovered/Not Resolved]

NARRATIVE: CASE EVENT DATE: 20210225
